FAERS Safety Report 18179054 (Version 1)
Quarter: 2020Q3

REPORT INFORMATION
  Report Type: Other
  Country: DE (occurrence: DE)
  Receive Date: 20200821
  Receipt Date: 20200821
  Transmission Date: 20201103
  Serious: Yes (Other)
  Sender: FDA-Public Use
  Company Number: DE-ROCHE-2657780

PATIENT
  Sex: Female

DRUGS (4)
  1. BEVACIZUMAB. [Suspect]
     Active Substance: BEVACIZUMAB
     Indication: OVARIAN CANCER
     Route: 065
  2. TRASTUZUMAB. [Suspect]
     Active Substance: TRASTUZUMAB
     Indication: OVARIAN CANCER
     Route: 065
  3. CARBOPLATIN. [Suspect]
     Active Substance: CARBOPLATIN
     Indication: BREAST CANCER
     Route: 065
  4. PERTUZUMAB. [Suspect]
     Active Substance: PERTUZUMAB
     Indication: OVARIAN CANCER
     Route: 065

REACTIONS (52)
  - Alopecia [Unknown]
  - Dry skin [Unknown]
  - Constipation [Unknown]
  - Heart rate increased [Unknown]
  - Dizziness [Unknown]
  - Parosmia [Unknown]
  - Migraine [Unknown]
  - Tinnitus [Unknown]
  - Diarrhoea [Unknown]
  - Epistaxis [Unknown]
  - Weight increased [Unknown]
  - Oral pain [Unknown]
  - Decreased appetite [Unknown]
  - Pain [Unknown]
  - Depression [Unknown]
  - Feeling abnormal [Unknown]
  - Insomnia [Unknown]
  - Dyspnoea [Unknown]
  - Hypoaesthesia [Unknown]
  - Fatigue [Unknown]
  - Abdominal distension [Unknown]
  - Rash [Unknown]
  - Acne [Unknown]
  - Vomiting [Unknown]
  - Tremor [Unknown]
  - Disturbance in attention [Unknown]
  - Tension [Unknown]
  - Irritability [Unknown]
  - Paraesthesia [Unknown]
  - Inappropriate affect [Unknown]
  - Anxiety [Unknown]
  - Hot flush [Unknown]
  - Menstruation irregular [Unknown]
  - Anger [Unknown]
  - Loss of libido [Unknown]
  - Nail discolouration [Unknown]
  - Headache [Unknown]
  - Dysphagia [Unknown]
  - Erectile dysfunction [Unknown]
  - Infertility [Unknown]
  - Deafness [Unknown]
  - Memory impairment [Unknown]
  - Pollakiuria [Unknown]
  - Weight decreased [Unknown]
  - Dysuria [Unknown]
  - Nausea [Unknown]
  - Ageusia [Unknown]
  - Abdominal pain upper [Unknown]
  - Thirst [Unknown]
  - Increased appetite [Unknown]
  - Oropharyngeal pain [Unknown]
  - Menopause [Unknown]
